FAERS Safety Report 21731573 (Version 1)
Quarter: 2022Q4

REPORT INFORMATION
  Report Type: Spontaneous
  Country: CN (occurrence: None)
  Receive Date: 20221215
  Receipt Date: 20221215
  Transmission Date: 20230112
  Serious: Yes (Other)
  Sender: FDA-Public Use
  Company Number: CN-ROCHE-3238030

PATIENT

DRUGS (9)
  1. GAZYVA [Suspect]
     Active Substance: OBINUTUZUMAB
     Indication: Follicular lymphoma
     Dosage: 08-NOV-2021; 09-NOV-2021 CONTINUOUS INJECTION FOR 4 HOURS
     Route: 042
     Dates: start: 20211108
  2. GAZYVA [Suspect]
     Active Substance: OBINUTUZUMAB
     Dosage: 100 MG 300 MG; AND 500 MG SLOW DRIP
     Route: 042
     Dates: start: 20211109
  3. DEXAMETHASONE SODIUM PHOSPHATE [Concomitant]
     Active Substance: DEXAMETHASONE SODIUM PHOSPHATE
     Dosage: 08-NOV-2021; 09-NOV-2021
     Route: 040
  4. PROMETHAZINE HYDROCHLORIDE [Concomitant]
     Active Substance: PROMETHAZINE HYDROCHLORIDE
     Dosage: 08-NOV-2021; 09-NOV-2021
     Route: 030
  5. ALBUMIN HUMAN [Concomitant]
     Active Substance: ALBUMIN HUMAN
     Route: 041
     Dates: start: 20211108
  6. ZOLPIDEM [Concomitant]
     Active Substance: ZOLPIDEM TARTRATE
     Route: 048
     Dates: start: 20211108
  7. TORSEMIDE [Concomitant]
     Active Substance: TORSEMIDE
     Dates: start: 20211109
  8. POTASSIUM CHLORIDE [Concomitant]
     Active Substance: POTASSIUM CHLORIDE
     Dates: start: 20211108
  9. POTASSIUM CHLORIDE [Concomitant]
     Active Substance: POTASSIUM CHLORIDE
     Route: 048
     Dates: start: 20211108

REACTIONS (1)
  - Agranulocytosis [Unknown]

NARRATIVE: CASE EVENT DATE: 20211109
